FAERS Safety Report 18779824 (Version 1)
Quarter: 2021Q1

REPORT INFORMATION
  Report Type: Spontaneous
  Country: US (occurrence: US)
  Receive Date: 20210125
  Receipt Date: 20210125
  Transmission Date: 20210419
  Serious: Yes (Death, Other)
  Sender: FDA-Public Use
  Company Number: US-TAKEDA-US201737949

PATIENT
  Age: 71 Year
  Sex: Female
  Weight: 40 kg

DRUGS (1)
  1. PENTASA [Suspect]
     Active Substance: MESALAMINE
     Indication: CROHN^S DISEASE
     Dosage: 8 DOSAGE FORM, QD
     Route: 065

REACTIONS (3)
  - Inappropriate schedule of product administration [Unknown]
  - Condition aggravated [Unknown]
  - Crohn^s disease [Fatal]

NARRATIVE: CASE EVENT DATE: 20210107
